FAERS Safety Report 9285216 (Version 1)
Quarter: 2013Q2

REPORT INFORMATION
  Report Type: Spontaneous
  Country: US (occurrence: US)
  Receive Date: 20130513
  Receipt Date: 20130513
  Transmission Date: 20140414
  Serious: Yes (Hospitalization, Other)
  Sender: FDA-Public Use
  Company Number: US-GENZYME-CLOF-1002624

PATIENT
  Age: 9 Month
  Sex: Male

DRUGS (10)
  1. CLOLAR [Suspect]
     Indication: LANGERHANS^ CELL HISTIOCYTOSIS
     Dosage: 30 MG/M2, UNK; FIRST CYCLE
     Route: 065
  2. CLOLAR [Suspect]
     Dosage: 25 MG/M2, UNK;  SECOND CYCLE
     Route: 065
  3. CLOLAR [Suspect]
     Dosage: 20 MG/M2, UNK;  THIRD CYCLE
     Route: 065
  4. CLOLAR [Suspect]
     Dosage: 20 MG/M2, UNK; FOURTH CYCLE
     Route: 065
  5. CLOLAR [Suspect]
     Dosage: 20 MG/M2, UNK; FIFTH CYCLE
     Route: 065
  6. CLOLAR [Suspect]
     Dosage: 20 MG/M2, UNK; SIXTH CYCLE
     Route: 065
  7. CLOLAR [Suspect]
     Dosage: 20 MG/M2, UNK;  SEVENTH CYCLE
     Route: 065
  8. CLOLAR [Suspect]
     Dosage: 20 MG/M2, UNK;  EIGTH CYCLE
     Route: 065
  9. CLOLAR [Suspect]
  10. ANTIFUNGALS [Concomitant]
     Indication: ANTIFUNGAL PROPHYLAXIS
     Dosage: UNK
     Route: 065

REACTIONS (3)
  - Fibrosis [Unknown]
  - Febrile neutropenia [Unknown]
  - Bone marrow failure [Unknown]
